FAERS Safety Report 4668783-3 (Version None)
Quarter: 2005Q2

REPORT INFORMATION
  Report Type: 
  Country: None (occurrence: None)
  Receive Date: 20050519
  Receipt Date: 20050422
  Transmission Date: 20051028
  Serious: Yes (Hospitalization)
  Sender: FDA-Public Use
  Company Number: PAR_0042_2005

PATIENT
  Age: 73 Year
  Sex: Male

DRUGS (8)
  1. ISOPTIN [Suspect]
     Dosage: 120 MG QDAY PO
     Route: 048
     Dates: end: 20041020
  2. METOPROLOL TARTRATE [Suspect]
     Dosage: 200 MG QDAY PO
     Route: 048
     Dates: end: 20041020
  3. FUROSEMIDE [Suspect]
     Dosage: 40 MG QDAY PO
     Route: 048
     Dates: end: 20041020
  4. ALFUZOSIN HYDROCHLORIDE [Suspect]
     Dosage: 10 MG QDAY PO
     Route: 048
     Dates: end: 20041020
  5. FLUOXETINE [Suspect]
     Dosage: 20 MG QDAY PO
     Route: 048
     Dates: end: 20041020
  6. ALLOPURINOL [Concomitant]
  7. ACENOCOUMAROL [Concomitant]
  8. CITALOPRAM HYDROBROMIDE [Concomitant]

REACTIONS (9)
  - ATRIAL FIBRILLATION [None]
  - BRADYCARDIA [None]
  - CARDIOMEGALY [None]
  - COLD SWEAT [None]
  - DIZZINESS [None]
  - HYPOTENSION [None]
  - LOSS OF CONSCIOUSNESS [None]
  - SYNCOPE [None]
  - VERTIGO [None]
